FAERS Safety Report 8743472 (Version 4)
Quarter: 2013Q1

REPORT INFORMATION
  Report Type: Report from Study
  Country: ES (occurrence: ES)
  Receive Date: 20120824
  Receipt Date: 20130130
  Transmission Date: 20140127
  Serious: Yes (Other)
  Sender: FDA-Public Use
  Company Number: ES-ROCHE-1061864

PATIENT
  Age: 72 Year
  Sex: Female
  Weight: 49.7 kg

DRUGS (3)
  1. VEMURAFENIB [Suspect]
     Indication: MALIGNANT MELANOMA
     Dosage: LAST DOE PRIOR TO SAE: 25/MAR/2012
     Route: 048
     Dates: start: 20120227, end: 20120413
  2. VEMURAFENIB [Suspect]
     Dosage: LAST DOSE PRIOR TO SAE WAS TAKEN ON 21/JUN/2012
     Route: 048
     Dates: start: 20120426, end: 20120626
  3. VEMURAFENIB [Suspect]
     Dosage: LAST DOSE PRIOR TO SAE WAS TAKEN ON 19/SEP/2012
     Route: 048
     Dates: start: 20120626

REACTIONS (3)
  - Keratoacanthoma [Recovered/Resolved]
  - Actinic keratosis [Recovered/Resolved]
  - Squamous cell carcinoma [Recovered/Resolved]
